FAERS Safety Report 5507581-5 (Version None)
Quarter: 2007Q4

REPORT INFORMATION
  Report Type: 
  Country: None (occurrence: None)
  Receive Date: 20071105
  Receipt Date: 20071105
  Transmission Date: 20080405
  Serious: Yes (Hospitalization)
  Sender: FDA-Public Use
  Company Number: None

PATIENT
  Sex: Male
  Weight: 34.2 kg

DRUGS (3)
  1. CYTARABINE [Suspect]
     Dosage: 1280 MG
  2. MYLOTARG [Suspect]
     Dosage: 3.6 MG
  3. MITOXANTRONE HCL [Suspect]
     Dosage: 14 MG

REACTIONS (7)
  - BACTERAEMIA [None]
  - CAECITIS [None]
  - ENTEROCOCCAL INFECTION [None]
  - ESCHERICHIA INFECTION [None]
  - MULTI-ORGAN FAILURE [None]
  - PANCYTOPENIA [None]
  - SEPTIC SHOCK [None]
